FAERS Safety Report 11098125 (Version 2)
Quarter: 2015Q2

REPORT INFORMATION
  Report Type: Spontaneous
  Country: PL (occurrence: PL)
  Receive Date: 20150507
  Receipt Date: 20150604
  Transmission Date: 20150821
  Serious: Yes (Death, Hospitalization, Other)
  Sender: FDA-Public Use
  Company Number: PL-APOTEX-2015AP008971

PATIENT
  Sex: Male

DRUGS (30)
  1. METHYLPREDNISOLONE. [Suspect]
     Active Substance: METHYLPREDNISOLONE
     Dosage: 0.5 MG/KG
     Route: 065
  2. FILGRASTIM [Concomitant]
     Active Substance: FILGRASTIM
     Indication: GRANULOCYTOSIS
     Route: 065
  3. OCTENISEPT                         /00972101/ [Concomitant]
     Indication: ANTIBIOTIC THERAPY
     Route: 065
  4. COTRIMOXAZOLE [Suspect]
     Active Substance: SULFAMETHOXAZOLE\TRIMETHOPRIM
     Indication: ANTIBIOTIC THERAPY
     Route: 065
     Dates: end: 20101216
  5. TEICOPLANIN [Concomitant]
     Active Substance: TEICOPLANIN
     Indication: ANTIBIOTIC THERAPY
     Route: 065
  6. CYCLOSPORINE. [Suspect]
     Active Substance: CYCLOSPORINE
     Indication: IMMUNOSUPPRESSANT DRUG THERAPY
     Dosage: UNK
     Route: 065
     Dates: start: 20101114
  7. ETANERCEPT [Suspect]
     Active Substance: ETANERCEPT
     Indication: IMMUNOSUPPRESSANT DRUG THERAPY
     Route: 065
  8. METHYLPREDNISOLONE. [Suspect]
     Active Substance: METHYLPREDNISOLONE
     Indication: IMMUNOSUPPRESSANT DRUG THERAPY
     Dosage: 1 MG/KG
     Route: 065
  9. IMIPENEM [Concomitant]
     Active Substance: IMIPENEM
     Indication: ANTIBIOTIC THERAPY
     Route: 065
  10. VORICONAZOLE. [Concomitant]
     Active Substance: VORICONAZOLE
     Dosage: 1% OINTMENT
     Route: 065
  11. ARGOSULFAN [Concomitant]
     Indication: ANTIBIOTIC THERAPY
     Route: 065
  12. PIPERACILLIN AND TAZOBACTAM [Concomitant]
     Active Substance: PIPERACILLIN SODIUM\TAZOBACTAM SODIUM
     Indication: ANTIBIOTIC THERAPY
     Route: 065
  13. MYCOPHENOLATE [Suspect]
     Active Substance: MYCOPHENOLIC ACID
     Indication: IMMUNOSUPPRESSANT DRUG THERAPY
     Dosage: UNK
     Route: 065
  14. METHOTREXATE [Suspect]
     Active Substance: METHOTREXATE
     Indication: IMMUNOSUPPRESSANT DRUG THERAPY
     Dosage: UNK
     Route: 065
     Dates: start: 20101114
  15. METHYLPREDNISOLONE. [Suspect]
     Active Substance: METHYLPREDNISOLONE
     Dosage: 0.3 MG/KG
     Route: 065
  16. METHYLPREDNISOLONE. [Suspect]
     Active Substance: METHYLPREDNISOLONE
     Dosage: 0.08 MG/KG
     Route: 065
  17. PREDNISOLONE. [Suspect]
     Active Substance: PREDNISOLONE
     Dosage: 2 MG/KG
     Route: 065
  18. RITUXIMAB [Concomitant]
     Active Substance: RITUXIMAB
     Indication: PRODUCT USED FOR UNKNOWN INDICATION
     Route: 065
  19. PREDNISOLONE. [Suspect]
     Active Substance: PREDNISOLONE
     Indication: IMMUNOSUPPRESSANT DRUG THERAPY
     Dosage: 0.5 MG/KG, UNK
     Route: 065
  20. AMIKACIN [Concomitant]
     Active Substance: AMIKACIN
     Indication: ANTIBIOTIC THERAPY
     Route: 065
  21. FLUCONAZOLE. [Concomitant]
     Active Substance: FLUCONAZOLE
     Indication: ANTIFUNGAL PROPHYLAXIS
     Dosage: UNK
     Route: 065
     Dates: end: 20101116
  22. CASPOFUNGIN [Concomitant]
     Active Substance: CASPOFUNGIN
     Indication: RESPIRATORY TRACT INFECTION
     Route: 065
  23. POSACONAZOLE [Concomitant]
     Active Substance: POSACONAZOLE
     Indication: RESPIRATORY TRACT INFECTION
     Route: 065
  24. BETADINE [Concomitant]
     Active Substance: POVIDONE-IODINE
     Indication: ANTIBIOTIC THERAPY
     Route: 065
  25. METHYLPREDNISOLONE. [Suspect]
     Active Substance: METHYLPREDNISOLONE
     Dosage: 0.15 MG/KG
     Route: 065
  26. METHYLPREDNISOLONE. [Suspect]
     Active Substance: METHYLPREDNISOLONE
     Dosage: 0.6 MG/KG
     Route: 065
  27. METHYLPREDNISOLONE. [Suspect]
     Active Substance: METHYLPREDNISOLONE
     Dosage: 2 MG/KG
     Route: 065
  28. VORICONAZOLE. [Concomitant]
     Active Substance: VORICONAZOLE
     Indication: RESPIRATORY TRACT INFECTION
     Route: 042
  29. AMPHOTERICIN B LIPOSOMAL [Concomitant]
     Active Substance: AMPHOTERICIN B
     Indication: RESPIRATORY TRACT INFECTION
     Route: 065
  30. MICAFUNGIN [Concomitant]
     Active Substance: MICAFUNGIN
     Indication: RESPIRATORY TRACT INFECTION
     Route: 065

REACTIONS (7)
  - Stevens-Johnson syndrome [Unknown]
  - Multi-organ failure [Fatal]
  - Fusarium infection [Not Recovered/Not Resolved]
  - Ecthyma [Not Recovered/Not Resolved]
  - Drug ineffective [Unknown]
  - Haemorrhagic necrotic pancreatitis [Fatal]
  - Circulatory collapse [Unknown]
